FAERS Safety Report 24559454 (Version 2)
Quarter: 2024Q4

REPORT INFORMATION
  Report Type: Spontaneous
  Country: GB (occurrence: GB)
  Receive Date: 20241029
  Receipt Date: 20241122
  Transmission Date: 20250115
  Serious: Yes (Death, Life-Threatening, Hospitalization, Disabling, Other)
  Sender: MICRO LABS
  Company Number: None

PATIENT
  Sex: Male
  Weight: 300 kg

DRUGS (2)
  1. FLUOXETINE [Suspect]
     Active Substance: FLUOXETINE HYDROCHLORIDE
     Indication: Product used for unknown indication
  2. ARIPIPRAZOLE [Suspect]
     Active Substance: ARIPIPRAZOLE
     Indication: Mental disorder

REACTIONS (5)
  - Cardiac arrest [Fatal]
  - Neuroleptic malignant syndrome [Fatal]
  - Blood creatine phosphokinase increased [Not Recovered/Not Resolved]
  - Hypoxia [Unknown]
  - Pyrexia [Not Recovered/Not Resolved]

NARRATIVE: CASE EVENT DATE: 20241001
